FAERS Safety Report 9159294 (Version 1)
Quarter: 2013Q1

REPORT INFORMATION
  Report Type: Spontaneous
  Country: DE (occurrence: DE)
  Receive Date: 20130313
  Receipt Date: 20130313
  Transmission Date: 20140127
  Serious: Yes (Hospitalization, Other)
  Sender: FDA-Public Use
  Company Number: DE-JNJFOC-20130304115

PATIENT
  Age: 70 Year
  Sex: Female

DRUGS (4)
  1. INFLIXIMAB, RECOMBINANT [Suspect]
     Indication: AUTOIMMUNE HEPATITIS
     Dosage: GIVEN 0.2.6 WEEKS LATER EVERY 4 TO 8 WEEKS. THE PATIENT HAS RECEIVED 22 INFUSIONS
     Route: 042
  2. INFLIXIMAB, RECOMBINANT [Suspect]
     Indication: AUTOIMMUNE HEPATITIS
     Dosage: GIVEN 0.2.6 WEEKS LATER EVERY 4 TO 8 WEEKS
     Route: 042
  3. PREDNISOLONE [Suspect]
     Indication: AUTOIMMUNE HEPATITIS
     Route: 065
  4. PREDNISOLONE [Suspect]
     Indication: AUTOIMMUNE HEPATITIS
     Route: 065

REACTIONS (3)
  - Pneumonia [Unknown]
  - Urinary tract infection [Unknown]
  - Off label use [Unknown]
